FAERS Safety Report 22350952 (Version 1)
Quarter: 2023Q2

REPORT INFORMATION
  Report Type: Spontaneous
  Country: US (occurrence: US)
  Receive Date: 20230522
  Receipt Date: 20230522
  Transmission Date: 20230722
  Serious: Yes (Other)
  Sender: FDA-Public Use
  Company Number: US-JUBILANT CADISTA PHARMACEUTICALS-2023JUB00197

PATIENT
  Age: 65 Year
  Sex: Female

DRUGS (2)
  1. MYCOPHENOLATE SODIUM [Suspect]
     Active Substance: MYCOPHENOLATE SODIUM
     Indication: Immunosuppressant drug therapy
     Dosage: 360 MG, EVERY 12 HOUR
     Route: 048
  2. TACROLIMUS [Suspect]
     Active Substance: TACROLIMUS
     Indication: Immunosuppressant drug therapy
     Dosage: 6 MG, EVERY 12 HOUR
     Route: 048

REACTIONS (2)
  - Impaired quality of life [Recovered/Resolved]
  - Trichodysplasia spinulosa [Recovered/Resolved]
